FAERS Safety Report 10192339 (Version 3)
Quarter: 2014Q2

REPORT INFORMATION
  Report Type: Report from Study
  Country: US (occurrence: US)
  Receive Date: 20140523
  Receipt Date: 20140617
  Transmission Date: 20141212
  Serious: Yes (Hospitalization, Other)
  Sender: FDA-Public Use
  Company Number: US-ACTELION-A-NJ2014-99136

PATIENT
  Age: 67 Year
  Sex: Male

DRUGS (3)
  1. MACITENTAN [Suspect]
     Indication: PULMONARY ARTERIAL HYPERTENSION
     Dosage: 10 MG, QD
     Route: 048
     Dates: start: 201401
  2. COUMADIN [Concomitant]
     Dosage: 1 MG, UNK
     Dates: start: 20140228
  3. REVATIO [Concomitant]
     Dosage: 80 MG, TID
     Dates: start: 20140228

REACTIONS (3)
  - Epistaxis [Not Recovered/Not Resolved]
  - Transfusion [Not Recovered/Not Resolved]
  - Nasal disorder [Not Recovered/Not Resolved]
